FAERS Safety Report 7460991-1 (Version None)
Quarter: 2011Q2

REPORT INFORMATION
  Report Type: 
  Country: None (occurrence: None)
  Receive Date: 20110505
  Receipt Date: 20101103
  Transmission Date: 20111010
  Serious: Yes (Other)
  Sender: FDA-Public Use
  Company Number: US-AMGEN-USASP2010003516

PATIENT
  Age: 53 Year
  Sex: Female

DRUGS (1)
  1. NPLATE [Suspect]
     Indication: MYELODYSPLASTIC SYNDROME
     Dates: start: 20100812, end: 20101028

REACTIONS (1)
  - DRUG INEFFECTIVE [None]
